FAERS Safety Report 25518124 (Version 1)
Quarter: 2025Q3

REPORT INFORMATION
  Report Type: Spontaneous
  Country: KR (occurrence: KR)
  Receive Date: 20250704
  Receipt Date: 20250704
  Transmission Date: 20251021
  Serious: Yes (Hospitalization, Other)
  Sender: ASTELLAS
  Company Number: KR-ASTELLAS-2022US035301

PATIENT
  Age: 89 Year
  Sex: Female

DRUGS (1)
  1. MIRABEGRON [Suspect]
     Active Substance: MIRABEGRON
     Indication: Pollakiuria
     Dosage: 50 MG, ONCE DAILY (ONE TABLET ONCE DAILY, STOPPED DUE TO ADVERSE EVENT)
     Route: 048
     Dates: start: 20220901, end: 20220911

REACTIONS (13)
  - Product dispensing error [Unknown]
  - Incorrect dose administered [Unknown]
  - Sepsis [Recovering/Resolving]
  - Delirium [Recovering/Resolving]
  - Hallucination, visual [Recovering/Resolving]
  - Muscular weakness [Unknown]
  - Loss of consciousness [Recovering/Resolving]
  - Dyspnoea [Unknown]
  - Flank pain [Unknown]
  - Sacral pain [Unknown]
  - Gastrointestinal motility disorder [Unknown]
  - Loss of personal independence in daily activities [Unknown]
  - Asthenia [Unknown]

NARRATIVE: CASE EVENT DATE: 20220901
